FAERS Safety Report 15128112 (Version 5)
Quarter: 2018Q3

REPORT INFORMATION
  Report Type: Spontaneous
  Country: JP (occurrence: JP)
  Receive Date: 20180710
  Receipt Date: 20180918
  Transmission Date: 20181010
  Serious: Yes (Hospitalization)
  Sender: FDA-Public Use
  Company Number: JP-BEH-2018092344

PATIENT
  Age: 76 Year
  Sex: Female
  Weight: 36.8 kg

DRUGS (15)
  1. FRAGMIN [Concomitant]
     Active Substance: DALTEPARIN SODIUM
     Dosage: 20000 IU, QD
     Route: 065
     Dates: start: 20180610, end: 20180625
  2. VONOPRAZAN [Concomitant]
     Active Substance: VONOPRAZAN
     Dosage: 10 MG, UNK
     Route: 048
     Dates: start: 20180517
  3. FIBROGAMMIN P [Suspect]
     Active Substance: FACTOR XIII CONCENTRATE (HUMAN)
     Indication: FISTULA REPAIR
     Dosage: 3 VIALS
     Route: 042
     Dates: start: 20180523, end: 20180527
  4. LIXIANA [Concomitant]
     Active Substance: EDOXABAN TOSYLATE
     Dosage: 30 MG, UNK
     Route: 048
     Dates: start: 20180626
  5. TAKEPRON [Concomitant]
     Active Substance: LANSOPRAZOLE
     Route: 065
  6. ETHYL ICOSAPENTATE [Concomitant]
     Active Substance: ICOSAPENT ETHYL
     Dosage: 900 MG, UNK
     Route: 048
     Dates: start: 20180515, end: 20180528
  7. HEPARIN [Concomitant]
     Active Substance: HEPARIN SODIUM
     Dosage: 20000 IU, OD
     Route: 065
     Dates: start: 20180608, end: 20180625
  8. ACETAMINOPHEN. [Concomitant]
     Active Substance: ACETAMINOPHEN
     Route: 065
  9. FRAGMIN [Concomitant]
     Active Substance: DALTEPARIN SODIUM
     Dosage: 10000 IU, QD
     Route: 065
     Dates: start: 20180608, end: 20180610
  10. CILOSTAZOL. [Concomitant]
     Active Substance: CILOSTAZOL
     Dosage: 100 MG, UNK
     Route: 048
     Dates: start: 20180515, end: 20180528
  11. ERIL                               /01590002/ [Concomitant]
     Dosage: 90 MG, UNK
     Route: 042
     Dates: start: 20180515, end: 20180528
  12. FIBROGAMMIN P [Suspect]
     Active Substance: FACTOR XIII CONCENTRATE (HUMAN)
     Indication: FISTULA
  13. FIBROGAMMIN P [Suspect]
     Active Substance: FACTOR XIII CONCENTRATE (HUMAN)
     Indication: CEREBROSPINAL FLUID LEAKAGE
  14. OZAGREL [Concomitant]
     Active Substance: OZAGREL
     Dosage: 80 MG, UNK
     Route: 042
     Dates: start: 20180515, end: 20180528
  15. CALBLOCK [Concomitant]
     Active Substance: AZELNIDIPINE
     Dosage: 16 MG, UNK
     Route: 048
     Dates: start: 20180516

REACTIONS (2)
  - Hydrocephalus [Recovered/Resolved]
  - Cerebral venous thrombosis [Recovering/Resolving]

NARRATIVE: CASE EVENT DATE: 20180529
